FAERS Safety Report 7505502-7 (Version None)
Quarter: 2011Q2

REPORT INFORMATION
  Report Type: 
  Country: None (occurrence: None)
  Receive Date: 20110526
  Receipt Date: 20110519
  Transmission Date: 20111010
  Serious: Yes (Other)
  Sender: FDA-Public Use
  Company Number: FR-BRISTOL-MYERS SQUIBB COMPANY-15442833

PATIENT
  Age: 30 Year
  Sex: Female
  Weight: 89 kg

DRUGS (3)
  1. REYATAZ [Suspect]
     Indication: HIV INFECTION
     Route: 048
     Dates: start: 20100501
  2. NORVIR [Suspect]
     Indication: HIV INFECTION
     Route: 048
     Dates: start: 20100501
  3. TRUVADA [Suspect]
     Indication: HIV INFECTION
     Dosage: 1DF=1 TABLET
     Route: 048
     Dates: start: 20091201

REACTIONS (4)
  - NORMAL NEWBORN [None]
  - PREGNANCY [None]
  - ABNORMAL LABOUR [None]
  - ERYSIPELAS [None]
